FAERS Safety Report 20371562 (Version 2)
Quarter: 2022Q1

REPORT INFORMATION
  Report Type: Spontaneous
  Country: GR (occurrence: GR)
  Receive Date: 20220124
  Receipt Date: 20220126
  Transmission Date: 20220424
  Serious: Yes (Other)
  Sender: FDA-Public Use
  Company Number: GR-PFIZER INC-202200053562

PATIENT
  Sex: Female

DRUGS (3)
  1. HYDROCORTISONE SODIUM SUCCINATE [Suspect]
     Active Substance: HYDROCORTISONE SODIUM SUCCINATE
     Dosage: UNK
  2. FLUDROCORTISONE [Suspect]
     Active Substance: FLUDROCORTISONE
     Dosage: UNK
  3. ALFACALCIDOL [Suspect]
     Active Substance: ALFACALCIDOL
     Dosage: UNK

REACTIONS (7)
  - Renal failure [Recovered/Resolved]
  - Autoimmune thyroiditis [Unknown]
  - Onychomycosis [Unknown]
  - Amenorrhoea [Unknown]
  - Ovarian cyst [Recovered/Resolved]
  - Ovarian disorder [Recovered/Resolved]
  - Eyelash changes [Unknown]
